FAERS Safety Report 5085937-5 (Version None)
Quarter: 2006Q3

REPORT INFORMATION
  Report Type: 
  Country: None (occurrence: None)
  Receive Date: 20060817
  Receipt Date: 20060804
  Transmission Date: 20061208
  Serious: Yes (Hospitalization)
  Sender: FDA-Public Use
  Company Number: 2006079562

PATIENT
  Age: 67 Year
  Sex: Male
  Weight: 59.8 kg

DRUGS (11)
  1. IRINOTECAN HCL [Suspect]
     Indication: GASTRIC CANCER
     Dosage: 140 MG, INTRAVENOUS
     Route: 042
     Dates: start: 20060523, end: 20060523
  2. TEGAFUR (TEGAFUR) [Concomitant]
  3. AMLODIPINE [Concomitant]
  4. ENALAPRIL MALEATE [Concomitant]
  5. LANSOPRAZOLE [Concomitant]
  6. LASIX [Concomitant]
  7. ALDACTONE [Concomitant]
  8. AMARYL [Concomitant]
  9. PURSENNID (SENNA LEAF) [Concomitant]
  10. MAGNESIUM OXIDE (MAGNESIUM OXIDE) [Concomitant]
  11. PREDNISOLONE [Concomitant]

REACTIONS (10)
  - ABASIA [None]
  - BLOOD PRESSURE SYSTOLIC DECREASED [None]
  - DECREASED APPETITE [None]
  - DEHYDRATION [None]
  - DEPRESSED LEVEL OF CONSCIOUSNESS [None]
  - ECTOPIC ANTIDIURETIC HORMONE SECRETION [None]
  - INAPPROPRIATE ANTIDIURETIC HORMONE SECRETION [None]
  - SWELLING [None]
  - TRI-IODOTHYRONINE FREE DECREASED [None]
  - URETERIC OBSTRUCTION [None]
